FAERS Safety Report 16353930 (Version 1)
Quarter: 2019Q2

REPORT INFORMATION
  Report Type: Spontaneous
  Country: IE (occurrence: IE)
  Receive Date: 20190524
  Receipt Date: 20190524
  Transmission Date: 20190711
  Serious: Yes (Other)
  Sender: FDA-Public Use
  Company Number: PHHY2019IE115129

PATIENT
  Weight: 1.3 kg

DRUGS (5)
  1. MAGNESIUM SULPHATE [Suspect]
     Active Substance: MAGNESIUM SULFATE
     Indication: FOETAL EXPOSURE DURING PREGNANCY
     Route: 064
  2. IRON [Suspect]
     Active Substance: IRON
     Indication: FOETAL EXPOSURE DURING PREGNANCY
     Dosage: UNK
     Route: 064
  3. BETAMETHASONE. [Suspect]
     Active Substance: BETAMETHASONE
     Indication: FOETAL EXPOSURE DURING PREGNANCY
     Route: 064
  4. URSODEOXYCHOLIC ACID [Suspect]
     Active Substance: URSODIOL
     Indication: FOETAL EXPOSURE DURING PREGNANCY
     Route: 064
  5. LABETALOL [Suspect]
     Active Substance: LABETALOL\LABETALOL HYDROCHLORIDE
     Indication: FOETAL EXPOSURE DURING PREGNANCY
     Route: 064

REACTIONS (4)
  - Foetal exposure during pregnancy [Unknown]
  - Low birth weight baby [Unknown]
  - Premature baby [Unknown]
  - Neonatal hyponatraemia [Unknown]
